FAERS Safety Report 4554652-6 (Version None)
Quarter: 2005Q1

REPORT INFORMATION
  Report Type: 
  Country: None (occurrence: None)
  Receive Date: 20050114
  Receipt Date: 20041108
  Transmission Date: 20050727
  Serious: Yes (Hospitalization)
  Sender: FDA-Public Use
  Company Number: GXBR2004FR00507

PATIENT
  Age: 72 Year
  Sex: Male

DRUGS (2)
  1. SPIRONOLACTONE [Suspect]
     Dosage: 12.5 MG, QD
     Dates: start: 20040703
  2. COVERSYL /FRA (PERINDOPRIL) [Suspect]
     Dosage: 2 MG, QD
     Dates: start: 20040904

REACTIONS (3)
  - DIZZINESS [None]
  - HYPOTENSION [None]
  - PULMONARY OEDEMA [None]
